FAERS Safety Report 9685045 (Version 3)
Quarter: 2015Q4

REPORT INFORMATION
  Report Type: Report from Study
  Country: CA (occurrence: CA)
  Receive Date: 20131113
  Receipt Date: 20151001
  Transmission Date: 20160305
  Serious: Yes (Other)
  Sender: FDA-Public Use
  Company Number: CA-JNJFOC-20131104139

PATIENT
  Sex: Male
  Weight: 57 kg

DRUGS (5)
  1. COSOPT [Concomitant]
     Active Substance: DORZOLAMIDE HYDROCHLORIDE\TIMOLOL MALEATE
     Route: 065
  2. PREDNISOLONE. [Concomitant]
     Active Substance: PREDNISOLONE
     Route: 065
  3. REMICADE [Suspect]
     Active Substance: INFLIXIMAB
     Indication: ANKYLOSING SPONDYLITIS
     Route: 042
     Dates: start: 20150923
  4. REMICADE [Suspect]
     Active Substance: INFLIXIMAB
     Indication: ANKYLOSING SPONDYLITIS
     Dosage: THERAPY DURATION WAS 2 HOURS
     Route: 042
     Dates: start: 20121228
  5. ENTOCORT [Concomitant]
     Active Substance: BUDESONIDE
     Dosage: AS NECESSARY
     Route: 065

REACTIONS (3)
  - Glaucoma [Not Recovered/Not Resolved]
  - Cataract [Unknown]
  - Uveitis [Not Recovered/Not Resolved]
